FAERS Safety Report 4827548-X (Version None)
Quarter: 2005Q4

REPORT INFORMATION
  Report Type: 
  Country: None (occurrence: None)
  Receive Date: 20051114
  Receipt Date: 20051025
  Transmission Date: 20060501
  Serious: Yes (Hospitalization, Other)
  Sender: FDA-Public Use
  Company Number: US-BRISTOL-MYERS SQUIBB COMPANY-13157144

PATIENT
  Age: 59 Year
  Sex: Female
  Weight: 89 kg

DRUGS (16)
  1. CARBOPLATIN [Suspect]
     Indication: BREAST CANCER METASTATIC
     Dosage: CYCLE 1, DAY 8
     Dates: start: 20051019, end: 20051019
  2. IRINOTECAN HCL [Suspect]
     Indication: BREAST CANCER METASTATIC
     Dosage: GIVEN DAY 1 + 8 EVERY 21 DAYS. THERAPY START DATE 12-OCT-05. ON HOLD AS OF 26-OCT-05.
     Dates: start: 20051019, end: 20051019
  3. ALLEGRA [Concomitant]
     Indication: SINUS CONGESTION
     Route: 048
     Dates: start: 20050427
  4. CALCIUM GLUCONATE [Concomitant]
     Indication: MINERAL SUPPLEMENTATION
     Route: 048
     Dates: start: 20050427
  5. COUMADIN [Concomitant]
     Indication: FACTOR V LEIDEN MUTATION
     Dosage: DOSING = 6.0 - 7.5 MG DAILY
     Route: 048
     Dates: start: 20050427
  6. HYDROXYZINE [Concomitant]
     Indication: ANTIALLERGIC THERAPY
     Route: 048
     Dates: start: 20050427
  7. M.V.I. [Concomitant]
     Indication: NUTRITIONAL SUPPORT
     Dosage: DOSAGE FORM = 1 TABLET
     Dates: start: 20050727
  8. SYNTHROID [Concomitant]
     Indication: HYPOTHYROIDISM
     Route: 048
     Dates: start: 20050427
  9. NEURONTIN [Concomitant]
     Indication: PAIN
     Dates: start: 20050427
  10. ATIVAN [Concomitant]
     Indication: NAUSEA
     Dosage: DOSAGE FORM = 0.5-1.0 MG EVERY 4 HOURS AS NEEDED.
     Route: 060
     Dates: start: 20050427
  11. COMPAZINE [Concomitant]
     Indication: NAUSEA
     Dosage: 10 MG EVERY 4 HOURS AS NEEDED.
     Route: 050
     Dates: start: 20050427
  12. QUESTRAN [Concomitant]
     Indication: DIARRHOEA
     Dosage: 1 PACKAGE TWICE PER DAY
     Route: 048
     Dates: start: 20050706
  13. PEPCID [Concomitant]
     Indication: GASTROOESOPHAGEAL REFLUX DISEASE
     Route: 048
     Dates: start: 20050831
  14. AMBIEN [Concomitant]
     Indication: INSOMNIA
     Dosage: TAKEN AT BEDTIME
     Route: 048
     Dates: start: 20050928
  15. KYTRIL [Concomitant]
     Indication: NAUSEA
     Route: 048
     Dates: start: 20051019
  16. IMODIUM [Concomitant]
     Indication: DIARRHOEA
     Dosage: 2 TABLETS FOUR TIMES PER DAY AS NEEDED.
     Route: 048
     Dates: start: 20051019

REACTIONS (3)
  - DEHYDRATION [None]
  - DIARRHOEA [None]
  - NEUTROPENIA [None]
